FAERS Safety Report 11149538 (Version 1)
Quarter: 2015Q2

REPORT INFORMATION
  Report Type: Spontaneous
  Country: US (occurrence: None)
  Receive Date: 20150528
  Receipt Date: 20150528
  Transmission Date: 20150821
  Serious: No
  Sender: FDA-Public Use
  Company Number: None

PATIENT
  Age: 61 Year
  Sex: Male
  Weight: 90.72 kg

DRUGS (8)
  1. CLARITIN-D 24 HOUR [Concomitant]
     Active Substance: LORATADINE\PSEUDOEPHEDRINE SULFATE
  2. COLCHICINE 0.6 MG PRASCO LABS [Suspect]
     Active Substance: COLCHICINE
     Indication: GOUT
     Dosage: 1 PILL
     Route: 048
     Dates: start: 20150427, end: 20150527
  3. LISINOPRIL 10 MG [Concomitant]
     Active Substance: LISINOPRIL
  4. FLUTICASONE PROPIONATE NASAL SPRAY [Concomitant]
     Active Substance: FLUTICASONE PROPIONATE
  5. ALEVE [Concomitant]
     Active Substance: NAPROXEN SODIUM
  6. CPAP [Concomitant]
     Active Substance: DEVICE
  7. COLCHICINE 0.6 MG PRASCO LABS [Suspect]
     Active Substance: COLCHICINE
     Indication: PROPHYLAXIS
     Dosage: 1 PILL
     Route: 048
     Dates: start: 20150427, end: 20150527
  8. PRILOSEC OTC 20.6 MG [Concomitant]

REACTIONS (4)
  - Product quality issue [None]
  - Gout [None]
  - Product substitution issue [None]
  - Drug ineffective [None]

NARRATIVE: CASE EVENT DATE: 20150527
